FAERS Safety Report 9928835 (Version 1)
Quarter: 2014Q1

REPORT INFORMATION
  Report Type: Spontaneous
  Country: US (occurrence: US)
  Receive Date: 20140227
  Receipt Date: 20140227
  Transmission Date: 20141002
  Serious: No
  Sender: FDA-Public Use
  Company Number: US-PFIZER INC-2014052784

PATIENT
  Age: 26 Year
  Sex: Female
  Weight: 54.42 kg

DRUGS (3)
  1. ADVIL [Suspect]
     Indication: HEADACHE
     Dosage: 200 MG, THREE TIMES A DAY
  2. IBUPROFEN [Concomitant]
     Indication: SINUS DISORDER
     Dosage: UNK
  3. IBUPROFEN [Concomitant]
     Indication: HEADACHE

REACTIONS (1)
  - Drug ineffective [Unknown]
